FAERS Safety Report 9464238 (Version 1)
Quarter: 2013Q3

REPORT INFORMATION
  Report Type: Spontaneous
  Country: JP (occurrence: JP)
  Receive Date: 20130819
  Receipt Date: 20130819
  Transmission Date: 20140515
  Serious: Yes (Hospitalization, Other)
  Sender: FDA-Public Use
  Company Number: JP-PFIZER INC-2013239323

PATIENT
  Age: 8 Decade
  Sex: Male

DRUGS (3)
  1. LYRICA [Suspect]
     Indication: NEUROPATHY PERIPHERAL
     Dosage: 150 MG/DAY
     Route: 048
     Dates: start: 201212
  2. LYRICA [Suspect]
     Dosage: 300 MG/DAY
     Route: 048
  3. CALONAL [Concomitant]
     Dosage: UNK

REACTIONS (3)
  - Postresuscitation encephalopathy [Not Recovered/Not Resolved]
  - Suicide attempt [Unknown]
  - Depression [Unknown]
